FAERS Safety Report 6853073-0 (Version None)
Quarter: 2010Q3

REPORT INFORMATION
  Report Type: 
  Country: None (occurrence: None)
  Receive Date: 20100717
  Receipt Date: 20080108
  Transmission Date: 20110219
  Serious: No
  Sender: FDA-Public Use
  Company Number: US-PFIZER INC-2007099799

PATIENT
  Sex: Female
  Weight: 121.6 kg

DRUGS (15)
  1. CHANTIX [Suspect]
     Indication: SMOKING CESSATION THERAPY
     Route: 048
     Dates: start: 20071111
  2. ANTIHYPERTENSIVES [Concomitant]
     Dates: start: 19970101
  3. DRUG, UNSPECIFIED [Concomitant]
     Dates: start: 20050101
  4. DEPAKOTE [Concomitant]
  5. ATENOLOL [Concomitant]
  6. SYNTHROID [Concomitant]
  7. AMARYL [Concomitant]
  8. COZAAR [Concomitant]
  9. LOTENSIN [Concomitant]
  10. CATAPRES [Concomitant]
  11. MOMETASONE FUROATE [Concomitant]
  12. ALBUTEROL [Concomitant]
  13. AXID [Concomitant]
  14. NORVASC [Concomitant]
  15. CELEBREX [Concomitant]

REACTIONS (1)
  - URINARY RETENTION [None]
